FAERS Safety Report 4447040-4 (Version None)
Quarter: 2004Q3

REPORT INFORMATION
  Report Type: 
  Country: None (occurrence: None)
  Receive Date: 20040812
  Receipt Date: 20040714
  Transmission Date: 20050211
  Serious: No
  Sender: FDA-Public Use
  Company Number: USA040772518

PATIENT
  Age: 63 Year
  Sex: Male
  Weight: 77 kg

DRUGS (6)
  1. CIALIS [Suspect]
     Indication: ERECTILE DYSFUNCTION
     Dosage: 20 MG
     Dates: start: 20040712
  2. PRAVACHOL [Concomitant]
  3. TERAZOSIN HCL [Concomitant]
  4. PROTONIX [Concomitant]
  5. BEXTRA [Concomitant]
  6. UNKNOWN BLOOD PRESSURE MEDICATION [Concomitant]

REACTIONS (1)
  - THERAPEUTIC RESPONSE DECREASED [None]
